FAERS Safety Report 13608613 (Version 1)
Quarter: 2017Q2

REPORT INFORMATION
  Report Type: Spontaneous
  Country: BR (occurrence: BR)
  Receive Date: 20170602
  Receipt Date: 20170602
  Transmission Date: 20170830
  Serious: Yes (Other)
  Sender: FDA-Public Use
  Company Number: BR-ALEXION-A201706013

PATIENT
  Age: 30 Year
  Sex: Female

DRUGS (2)
  1. SOLIRIS [Suspect]
     Active Substance: ECULIZUMAB
     Dosage: 900 MG, Q2W
     Route: 042
     Dates: start: 20141230
  2. SOLIRIS [Suspect]
     Active Substance: ECULIZUMAB
     Indication: PAROXYSMAL NOCTURNAL HAEMOGLOBINURIA
     Dosage: 600 MG, FOR 4 WEEKS
     Route: 042
     Dates: start: 20141105, end: 20141226

REACTIONS (7)
  - Depression [Unknown]
  - Anaemia [Unknown]
  - Tachycardia [Unknown]
  - Apathy [Unknown]
  - Mood altered [Unknown]
  - Anaphylactic shock [Unknown]
  - Asthenia [Unknown]

NARRATIVE: CASE EVENT DATE: 20170511
